FAERS Safety Report 25415950 (Version 2)
Quarter: 2025Q2

REPORT INFORMATION
  Report Type: Spontaneous
  Country: RU (occurrence: RU)
  Receive Date: 20250610
  Receipt Date: 20250625
  Transmission Date: 20250717
  Serious: Yes (Other)
  Sender: NOVARTIS
  Company Number: RU-002147023-NVSC2025RU089272

PATIENT
  Sex: Female

DRUGS (2)
  1. ASCIMINIB [Suspect]
     Active Substance: ASCIMINIB
     Indication: Chronic myeloid leukaemia
     Dosage: 40 MG, BID
     Route: 065
     Dates: start: 202501
  2. ASCIMINIB [Suspect]
     Active Substance: ASCIMINIB
     Dosage: 40 MG, QD, (1 TABLET)
     Route: 065
     Dates: start: 20250301, end: 20250506

REACTIONS (2)
  - Platelet count decreased [Unknown]
  - Haemorrhagic disorder [Unknown]

NARRATIVE: CASE EVENT DATE: 20250301
